FAERS Safety Report 12871212 (Version 1)
Quarter: 2016Q4

REPORT INFORMATION
  Report Type: Spontaneous
  Country: NL (occurrence: NL)
  Receive Date: 20161020
  Receipt Date: 20161020
  Transmission Date: 20170207
  Serious: Yes (Other)
  Sender: FDA-Public Use
  Company Number: PHHY2016NL142903

PATIENT
  Age: 14 Year
  Sex: Male

DRUGS (1)
  1. GABAPENTIN. [Suspect]
     Active Substance: GABAPENTIN
     Indication: HYPERAESTHESIA
     Dosage: 100 MG, BID
     Route: 065

REACTIONS (3)
  - Obsessive thoughts [Unknown]
  - Affect lability [Unknown]
  - Anxiety [Unknown]
